FAERS Safety Report 5786233-0 (Version None)
Quarter: 2008Q2

REPORT INFORMATION
  Report Type: 
  Country: None (occurrence: None)
  Receive Date: 20080624
  Receipt Date: 20080527
  Transmission Date: 20081010
  Serious: Yes (Other)
  Sender: FDA-Public Use
  Company Number: US-PFIZER INC-2008043631

PATIENT
  Sex: Male
  Weight: 83.4 kg

DRUGS (3)
  1. MARAVIROC [Suspect]
     Route: 048
  2. OXYCODONE HCL [Concomitant]
     Indication: PROCEDURAL PAIN
     Route: 048
  3. FERROUS SULFATE TAB [Concomitant]
     Indication: ANAEMIA
     Dosage: DAILY DOSE:10ML
     Route: 048

REACTIONS (1)
  - RECTAL CANCER [None]
